FAERS Safety Report 22940220 (Version 2)
Quarter: 2023Q4

REPORT INFORMATION
  Report Type: Report from Study
  Country: CO (occurrence: CO)
  Receive Date: 20230913
  Receipt Date: 20231106
  Transmission Date: 20240110
  Serious: Yes (Hospitalization, Other)
  Sender: FDA-Public Use
  Company Number: CO-TAKEDA-2022TUS022498

PATIENT
  Age: 76 Year
  Sex: Male
  Weight: 56 kg

DRUGS (2)
  1. VEDOLIZUMAB [Suspect]
     Active Substance: VEDOLIZUMAB
     Indication: Colitis ulcerative
     Dosage: 900 MILLIGRAM
     Route: 042
  2. VEDOLIZUMAB [Suspect]
     Active Substance: VEDOLIZUMAB
     Dosage: 300 MILLIGRAM
     Route: 042

REACTIONS (7)
  - Nephrolithiasis [Unknown]
  - Decreased appetite [Unknown]
  - Haematochezia [Unknown]
  - Cholelithiasis [Unknown]
  - Blood creatinine increased [Unknown]
  - Product prescribing error [Unknown]
  - Inflammation [Not Recovered/Not Resolved]

NARRATIVE: CASE EVENT DATE: 20220317
